FAERS Safety Report 22058764 (Version 2)
Quarter: 2023Q1

REPORT INFORMATION
  Report Type: Report from Study
  Country: US (occurrence: None)
  Receive Date: 20230303
  Receipt Date: 20230329
  Transmission Date: 20230418
  Serious: Yes (Hospitalization)
  Sender: FDA-Public Use
  Company Number: 2023A051236

PATIENT
  Age: 82 Year
  Sex: Male
  Weight: 69.4 kg

DRUGS (2)
  1. CALQUENCE [Suspect]
     Active Substance: ACALABRUTINIB
     Indication: Weight
     Route: 048
     Dates: start: 20210616, end: 20221115
  2. CALQUENCE [Suspect]
     Active Substance: ACALABRUTINIB
     Indication: Lymphoplasmacytoid lymphoma/immunocytoma recurrent
     Route: 048
     Dates: start: 20210616, end: 20221115

REACTIONS (4)
  - Pneumonia [Recovered/Resolved]
  - Orthostatic hypotension [Recovered/Resolved]
  - COVID-19 [Recovered/Resolved]
  - Off label use [Unknown]

NARRATIVE: CASE EVENT DATE: 20221015
